FAERS Safety Report 6647088-5 (Version None)
Quarter: 2010Q1

REPORT INFORMATION
  Report Type: 
  Country: None (occurrence: None)
  Receive Date: 20100323
  Receipt Date: 20100316
  Transmission Date: 20100710
  Serious: Yes (Hospitalization)
  Sender: FDA-Public Use
  Company Number: NL-ROCHE-691376

PATIENT
  Sex: Male

DRUGS (8)
  1. CAPECITABINE [Suspect]
     Indication: COLORECTAL CANCER
     Route: 048
     Dates: start: 20090507
  2. BEVACIZUMAB [Suspect]
     Indication: COLORECTAL CANCER
     Route: 042
     Dates: start: 20090507
  3. OXALIPLATIN [Suspect]
     Indication: COLORECTAL CANCER
     Route: 042
     Dates: start: 20090507
  4. ASCAL [Concomitant]
  5. TEMAZEPAM [Concomitant]
     Route: 042
  6. IRBESARTAN [Concomitant]
  7. SIMVASTATIN [Concomitant]
  8. PRIMPERAN INJ [Concomitant]

REACTIONS (1)
  - VARICES OESOPHAGEAL [None]
